FAERS Safety Report 6027122-6 (Version None)
Quarter: 2009Q1

REPORT INFORMATION
  Report Type: 
  Country: None (occurrence: None)
  Receive Date: 20090105
  Receipt Date: 20081222
  Transmission Date: 20090719
  Serious: Yes (Life-Threatening, Other)
  Sender: FDA-Public Use
  Company Number: AU-AVENTIS-200821364GDDC

PATIENT
  Age: 57 Year
  Sex: Female

DRUGS (8)
  1. ARAVA [Suspect]
     Route: 048
     Dates: start: 20000101
  2. TRITACE [Suspect]
     Dosage: DOSE: UNK
  3. PLAVIX [Suspect]
     Dosage: DOSE: UNK
  4. PLAQUENIL                          /00072601/ [Suspect]
     Dosage: DOSE: UNK
  5. LIPITOR [Concomitant]
     Dosage: DOSE: UNK
  6. NEXIUM [Concomitant]
     Dosage: DOSE: UNK
  7. HAY FEVER RELIEF [Concomitant]
     Dosage: DOSE: UNK
  8. PANADEINE                          /00116401/ [Concomitant]
     Dosage: DOSE: UNK

REACTIONS (1)
  - MYOCARDIAL INFARCTION [None]
